FAERS Safety Report 5952915-0 (Version None)
Quarter: 2008Q4

REPORT INFORMATION
  Report Type: 
  Country: None (occurrence: None)
  Receive Date: 20081114
  Receipt Date: 20081110
  Transmission Date: 20090506
  Serious: Yes (Disabling)
  Sender: FDA-Public Use
  Company Number: NL-PURDUE-GBR_2008_0004584

PATIENT
  Age: 48 Year
  Sex: Female

DRUGS (3)
  1. OXYCONTIN [Suspect]
     Indication: DRUG USE FOR UNKNOWN INDICATION
     Dosage: 10 MG, TID
     Route: 065
     Dates: start: 20080709
  2. PREGABALIN [Concomitant]
     Dosage: 300 MG, BID
     Route: 065
  3. AMITRIPTYLINE HCL [Concomitant]
     Dosage: 25 MG, DAILY
     Route: 065

REACTIONS (2)
  - BLOOD GLUCOSE ABNORMAL [None]
  - SYNCOPE [None]
